FAERS Safety Report 4509024-7 (Version None)
Quarter: 2004Q4

REPORT INFORMATION
  Report Type: 
  Country: None (occurrence: None)
  Receive Date: 20041122
  Receipt Date: 20041122
  Transmission Date: 20050328
  Serious: Yes (Other)
  Sender: FDA-Public Use
  Company Number: None

PATIENT
  Sex: Female

DRUGS (2)
  1. ALDARA [Suspect]
     Indication: MOLLUSCUM CONTAGIOSUM
     Dosage: 3 TIMES PER WEEK ON MOLLUSCUM
  2. ZYRTEC [Concomitant]

REACTIONS (3)
  - OEDEMA PERIPHERAL [None]
  - RASH PRURITIC [None]
  - URTICARIA [None]
